FAERS Safety Report 14070863 (Version 1)
Quarter: 2017Q4

REPORT INFORMATION
  Report Type: Spontaneous
  Country: FR (occurrence: FR)
  Receive Date: 20171010
  Receipt Date: 20171010
  Transmission Date: 20180321
  Serious: Yes (Other)
  Sender: FDA-Public Use
  Company Number: FR-MERCK KGAA-2029498

PATIENT
  Age: 60 Year
  Sex: Female

DRUGS (10)
  1. TAREG (VALSARTAN) [Concomitant]
  2. NOVOTHYROX [Suspect]
     Active Substance: LEVOTHYROXINE SODIUM
     Indication: AUTOIMMUNE THYROIDITIS
     Route: 048
  3. IXPRIM(ULTRACET) [Concomitant]
  4. PAROXETINE. [Concomitant]
     Active Substance: PAROXETINE
  5. NASONEX [Concomitant]
     Active Substance: MOMETASONE FUROATE
  6. KETODERM GEL (KETOCONAZOLE) [Concomitant]
  7. LYRICA [Concomitant]
     Active Substance: PREGABALIN
  8. PAROXETINE. [Concomitant]
     Active Substance: PAROXETINE
  9. SERC [Concomitant]
     Active Substance: BETAHISTINE HYDROCHLORIDE
  10. TRIDESONIT(DESONIDE) [Concomitant]

REACTIONS (4)
  - Fatigue [Not Recovered/Not Resolved]
  - Depression [Not Recovered/Not Resolved]
  - Blood thyroid stimulating hormone increased [Not Recovered/Not Resolved]
  - Poor quality sleep [Not Recovered/Not Resolved]

NARRATIVE: CASE EVENT DATE: 201707
